FAERS Safety Report 8821070 (Version 2)
Quarter: 2012Q4

REPORT INFORMATION
  Report Type: 
  Country: JP (occurrence: JP)
  Receive Date: 20121002
  Receipt Date: 20121009
  Transmission Date: 20130627
  Serious: Yes (Other)
  Sender: FDA-Public Use
  Company Number: JP-ROCHE-1135710

PATIENT
  Age: 50 Year
  Sex: Male

DRUGS (5)
  1. AVASTIN [Suspect]
     Indication: RECTAL CANCER METASTATIC
     Dosage: Dosage is uncertain.
     Route: 041
     Dates: start: 2011
  2. ELPLAT [Concomitant]
     Indication: RECTAL CANCER METASTATIC
     Dosage: Dosage is uncertain.
     Route: 041
     Dates: start: 201106
  3. 5-FU [Concomitant]
     Indication: RECTAL CANCER METASTATIC
     Dosage: Dosage is uncertain.
     Route: 040
     Dates: start: 201106
  4. 5-FU [Concomitant]
     Indication: RECTAL CANCER METASTATIC
     Dosage: Dosage is uncertain.
     Route: 041
     Dates: start: 201106
  5. LEVOFOLINATE [Concomitant]
     Indication: RECTAL CANCER METASTATIC
     Dosage: Dosage is uncertain.
     Route: 041
     Dates: start: 201106

REACTIONS (10)
  - Metastases to spine [Unknown]
  - Skin ulcer [Unknown]
  - Jaundice [Unknown]
  - Pleural effusion [Unknown]
  - Diarrhoea [Unknown]
  - Abdominal pain [Unknown]
  - Hyponatraemia [Unknown]
  - Enteritis infectious [Unknown]
  - Cytomegalovirus enterocolitis [Unknown]
  - Metastases to bone [Unknown]
